FAERS Safety Report 5520592-9 (Version None)
Quarter: 2007Q4

REPORT INFORMATION
  Report Type: 
  Country: None (occurrence: None)
  Receive Date: 20071119
  Receipt Date: 20071108
  Transmission Date: 20080405
  Serious: Yes (Other)
  Sender: FDA-Public Use
  Company Number: NL-AMGEN-UK252065

PATIENT
  Age: 59 Year
  Sex: Male

DRUGS (4)
  1. NEUPOGEN [Suspect]
     Indication: CHEMOTHERAPY
     Route: 058
  2. TRETINOIN [Concomitant]
     Route: 048
  3. PREDNISOLONE [Concomitant]
     Route: 065
  4. IDARUBICIN HCL [Concomitant]
     Route: 042

REACTIONS (1)
  - ACUTE FEBRILE NEUTROPHILIC DERMATOSIS [None]
